FAERS Safety Report 18379970 (Version 4)
Quarter: 2025Q2

REPORT INFORMATION
  Report Type: Report from Study
  Country: IT (occurrence: IT)
  Receive Date: 20201014
  Receipt Date: 20250621
  Transmission Date: 20250717
  Serious: Yes (Other)
  Sender: AUROBINDO
  Company Number: IT-STADA-208758

PATIENT
  Age: 56 Year
  Sex: Female

DRUGS (1)
  1. VORICONAZOLE [Suspect]
     Active Substance: VORICONAZOLE
     Indication: Product used for unknown indication
     Route: 065

REACTIONS (4)
  - Alanine aminotransferase increased [Unknown]
  - Hepatitis E [Unknown]
  - Graft versus host disease [Unknown]
  - Toxicity to various agents [Unknown]
